FAERS Safety Report 10346932 (Version 1)
Quarter: 2014Q3

REPORT INFORMATION
  Report Type: Spontaneous
  Country: US (occurrence: US)
  Receive Date: 20140729
  Receipt Date: 20140729
  Transmission Date: 20150326
  Serious: Yes (Other)
  Sender: FDA-Public Use
  Company Number: US-B.I. PHARMACEUTICALS,INC./RIDGEFIELD-2014-BI-33978BP

PATIENT
  Sex: Female

DRUGS (5)
  1. METOPROLOL [Concomitant]
     Active Substance: METOPROLOL
     Indication: CARDIAC VALVE DISEASE
  2. PRADAXA [Suspect]
     Active Substance: DABIGATRAN ETEXILATE MESYLATE
     Indication: ATRIAL FIBRILLATION
     Dosage: 300 MG
     Route: 048
     Dates: start: 2011
  3. LANTANOPROST [Concomitant]
     Indication: GLAUCOMA
     Dosage: ONE DROP TO BOTH EYES DAILY.
     Route: 050
     Dates: start: 2011
  4. METOPROLOL [Concomitant]
     Active Substance: METOPROLOL
     Indication: ATRIAL FIBRILLATION
     Dosage: 50 MG
     Route: 048
     Dates: start: 2011
  5. PRADAXA [Suspect]
     Active Substance: DABIGATRAN ETEXILATE MESYLATE
     Indication: CARDIAC VALVE DISEASE

REACTIONS (2)
  - Deafness bilateral [Not Recovered/Not Resolved]
  - Off label use [Unknown]

NARRATIVE: CASE EVENT DATE: 2011
